FAERS Safety Report 14299703 (Version 1)
Quarter: 2017Q4

REPORT INFORMATION
  Report Type: Other
  Country: DE (occurrence: DE)
  Receive Date: 20171219
  Receipt Date: 20171219
  Transmission Date: 20180321
  Serious: Yes (Death, Hospitalization, Other)
  Sender: FDA-Public Use
  Company Number: DE-MACLEODS PHARMACEUTICALS US LTD-MAC2017006958

PATIENT

DRUGS (8)
  1. PANTOZOL [Interacting]
     Active Substance: PANTOPRAZOLE SODIUM
     Indication: PROPHYLAXIS AGAINST GASTROINTESTINAL ULCER
     Dosage: 20 MG, UNK
     Route: 065
     Dates: start: 20150201
  2. CARBOPLATIN. [Suspect]
     Active Substance: CARBOPLATIN
     Indication: SQUAMOUS CELL CARCINOMA OF HEAD AND NECK
     Dosage: 1 DF, 3 WEEK, 5AUC
     Route: 065
     Dates: start: 20150218, end: 20150729
  3. ONDANSETRON [Concomitant]
     Active Substance: ONDANSETRON
     Indication: PREMEDICATION
     Dosage: 1 DF, 1 WEEK
     Route: 065
     Dates: start: 20150225, end: 20150415
  4. VALSARTAN. [Suspect]
     Active Substance: VALSARTAN
     Indication: HYPERTONIA
     Dosage: 80 MG, UNK
     Route: 065
     Dates: start: 20000101
  5. ERBITUX [Suspect]
     Active Substance: CETUXIMAB
     Indication: SQUAMOUS CELL CARCINOMA OF HEAD AND NECK
     Dosage: 400 MG/M2
     Route: 042
     Dates: start: 20150218, end: 20150722
  6. EMEND [Concomitant]
     Active Substance: APREPITANT
     Indication: PREMEDICATION
     Dosage: 1 DF, 1 WEEK
     Route: 065
     Dates: start: 20150225, end: 20150415
  7. ZOFRAN [Interacting]
     Active Substance: ONDANSETRON HYDROCHLORIDE
     Indication: NAUSEA
     Dosage: 8 MG, UNK
     Route: 065
     Dates: start: 20150201
  8. 5-FU [Suspect]
     Active Substance: FLUOROURACIL
     Indication: SQUAMOUS CELL CARCINOMA OF HEAD AND NECK
     Dosage: 1000 MG/M2, 3 WEEKS
     Route: 065
     Dates: start: 20150218, end: 20150729

REACTIONS (3)
  - Dry skin [Unknown]
  - Drug interaction [Unknown]
  - Syncope [Recovered/Resolved]

NARRATIVE: CASE EVENT DATE: 20150405
